FAERS Safety Report 25906673 (Version 1)
Quarter: 2025Q4

REPORT INFORMATION
  Report Type: Spontaneous
  Country: JP (occurrence: JP)
  Receive Date: 20251010
  Receipt Date: 20251010
  Transmission Date: 20260117
  Serious: Yes (Other)
  Sender: BAYER HEALTHCARE PHARMACEUTICALS INC.
  Company Number: JP-BAYER-2025A107457

PATIENT
  Age: 3 Decade
  Sex: Male
  Weight: 96 kg

DRUGS (6)
  1. ADEMPAS [Suspect]
     Active Substance: RIOCIGUAT
     Indication: Pulmonary arterial hypertension
     Dosage: DAILY DOSE 7.5 MG
     Route: 048
  2. SOTATERCEPT [Suspect]
     Active Substance: SOTATERCEPT
     Dosage: DAILY DOSE .3 MG/KG
  3. SOTATERCEPT [Suspect]
     Active Substance: SOTATERCEPT
     Dosage: DAILY DOSE 0.7 MG/KG
  4. SOTATERCEPT [Suspect]
     Active Substance: SOTATERCEPT
     Dosage: DAILY DOSE 0.3 MG/KG
  5. OPSUMIT [Concomitant]
     Active Substance: MACITENTAN
     Dosage: DAILY DOSE 10 MG
  6. SELEXIPAG [Concomitant]
     Active Substance: SELEXIPAG
     Dosage: DAILY DOSE 3.2 MG

REACTIONS (2)
  - Thrombocytopenia [None]
  - Haemoglobin increased [None]
